FAERS Safety Report 15043919 (Version 4)
Quarter: 2018Q3

REPORT INFORMATION
  Report Type: Spontaneous
  Country: BE (occurrence: BE)
  Receive Date: 20180621
  Receipt Date: 20180816
  Transmission Date: 20181010
  Serious: Yes (Hospitalization, Other)
  Sender: FDA-Public Use
  Company Number: BE-SA-2018SA154475

PATIENT
  Age: 34 Year
  Sex: Female

DRUGS (7)
  1. LEMTRADA [Suspect]
     Active Substance: ALEMTUZUMAB
     Dosage: UNK
     Route: 041
     Dates: start: 201608
  2. AUBAGIO [Concomitant]
     Active Substance: TERIFLUNOMIDE
     Dosage: UNK UNK, UNK
     Route: 065
  3. LEMTRADA [Suspect]
     Active Substance: ALEMTUZUMAB
     Dosage: UNK
  4. TYSABRI [Concomitant]
     Active Substance: NATALIZUMAB
     Dosage: UNK UNK, UNK
     Route: 065
  5. GILENYA [Concomitant]
     Active Substance: FINGOLIMOD HYDROCHLORIDE
     Dosage: UNK UNK, UNK
     Route: 065
  6. LEMTRADA [Suspect]
     Active Substance: ALEMTUZUMAB
     Dosage: UNK
     Route: 041
     Dates: start: 201708
  7. MEDROL [METHYLPREDNISOLONE] [Concomitant]
     Dosage: 32 (NOS), UNK AND TRNASFUSED IF NEEDED
     Route: 065

REACTIONS (14)
  - Parvovirus infection [Recovered/Resolved]
  - Pancytopenia [Unknown]
  - Platelet count decreased [Recovering/Resolving]
  - Tooth abscess [Recovered/Resolved]
  - White blood cell count decreased [Unknown]
  - Neutrophil count decreased [Not Recovered/Not Resolved]
  - Wisdom teeth removal [Unknown]
  - Lymphocyte count abnormal [Unknown]
  - Red blood cell count decreased [Unknown]
  - Impaired healing [Unknown]
  - Haemoglobin decreased [Recovering/Resolving]
  - Trigeminal neuralgia [Recovered/Resolved]
  - Dysgeusia [Unknown]
  - Paraesthesia [Unknown]

NARRATIVE: CASE EVENT DATE: 201804
